FAERS Safety Report 7180375-3 (Version None)
Quarter: 2010Q4

REPORT INFORMATION
  Report Type: 
  Country: None (occurrence: None)
  Receive Date: 20101221
  Receipt Date: 20101220
  Transmission Date: 20110411
  Serious: Yes (Other)
  Sender: FDA-Public Use
  Company Number: A0900695A

PATIENT
  Sex: Female

DRUGS (1)
  1. ACITRETIN [Suspect]
     Dates: start: 20091201

REACTIONS (8)
  - GASTRIC DISORDER [None]
  - HEADACHE [None]
  - LIVER DISORDER [None]
  - MIGRAINE [None]
  - OFF LABEL USE [None]
  - PAIN IN EXTREMITY [None]
  - SYSTEMIC LUPUS ERYTHEMATOSUS [None]
  - THERAPEUTIC RESPONSE DECREASED [None]
